FAERS Safety Report 21212915 (Version 1)
Quarter: 2022Q3

REPORT INFORMATION
  Report Type: Report from Study
  Country: DE (occurrence: DE)
  Receive Date: 20220815
  Receipt Date: 20220815
  Transmission Date: 20221027
  Serious: Yes (Other)
  Sender: FDA-Public Use
  Company Number: DE-BAXTER-2022BAX017288

PATIENT
  Sex: Male

DRUGS (3)
  1. OLIMEL [Suspect]
     Active Substance: AMINO ACIDS\DEXTROSE\SOYBEAN OIL
     Indication: Intradialytic parenteral nutrition
     Dosage: 650 ML, 3 TIMES WEEKLY AT AN INFUSION RATE OF 130 ML/H
     Route: 065
     Dates: start: 20220705
  2. ASCORBIC ACID\BIOTIN\CYANOCOBALAMIN\FOLIC ACID\NIACINAMIDE\PANTOTHENIC [Suspect]
     Active Substance: ASCORBIC ACID\BIOTIN\CYANOCOBALAMIN\FOLIC ACID\NIACINAMIDE\PANTOTHENIC ACID\PYRIDOXINE\RIBOFLAVIN\TH
     Indication: Intradialytic parenteral nutrition
     Dosage: 10 ML, 3 TIMES WEEKLY AT AN INFUSION RATE OF 10 ML/H
     Route: 065
     Dates: start: 20220705
  3. UNSPECIFIED INGREDIENT [Suspect]
     Active Substance: UNSPECIFIED INGREDIENT
     Route: 065

REACTIONS (1)
  - Gastric stenosis [Unknown]

NARRATIVE: CASE EVENT DATE: 20220809
